FAERS Safety Report 4359237-2 (Version None)
Quarter: 2004Q2

REPORT INFORMATION
  Report Type: 
  Country: None (occurrence: None)
  Receive Date: 20040512
  Receipt Date: 20040428
  Transmission Date: 20050107
  Serious: Yes (Other)
  Sender: FDA-Public Use
  Company Number: USA040466206

PATIENT
  Age: 74 Year
  Sex: Female

DRUGS (6)
  1. GEMZAR [Suspect]
     Indication: BREAST CANCER
     Dosage: 1000 MG/M2
     Dates: start: 20031001
  2. GEMZAR [Suspect]
     Indication: HEPATIC NEOPLASM MALIGNANT
     Dosage: 1000 MG/M2
     Dates: start: 20031001
  3. GEMZAR [Suspect]
     Indication: LUNG NEOPLASM MALIGNANT
     Dosage: 1000 MG/M2
     Dates: start: 20031001
  4. PROCRIT (ERYTHROPOIETIN) [Concomitant]
  5. NEUPOGEN [Concomitant]
  6. INNOHEP [Concomitant]

REACTIONS (8)
  - CONTUSION [None]
  - DRUG INEFFECTIVE [None]
  - ERYTHEMA [None]
  - EYELID OEDEMA [None]
  - OEDEMA PERIPHERAL [None]
  - PAIN [None]
  - THROMBOSIS [None]
  - VISION BLURRED [None]
